FAERS Safety Report 9423151 (Version 4)
Quarter: 2014Q3

REPORT INFORMATION
  Report Type: Spontaneous
  Country: US (occurrence: US)
  Receive Date: 20130726
  Receipt Date: 20140819
  Transmission Date: 20150326
  Serious: Yes (Death)
  Sender: FDA-Public Use
  Company Number: US-BRISTOL-MYERS SQUIBB COMPANY-19137561

PATIENT
  Age: 60 Year
  Sex: Male

DRUGS (57)
  1. MIRTAZAPINE. [Concomitant]
     Active Substance: MIRTAZAPINE
  2. PROMETHAZINE [Concomitant]
     Active Substance: PROMETHAZINE\PROMETHAZINE HYDROCHLORIDE
  3. ACETAMINOPHEN. [Concomitant]
     Active Substance: ACETAMINOPHEN
  4. ALLOPURINOL. [Concomitant]
     Active Substance: ALLOPURINOL
  5. ASCORBIC ACID. [Concomitant]
     Active Substance: ASCORBIC ACID
  6. FOLIC ACID. [Concomitant]
     Active Substance: FOLIC ACID
  7. HUMALOG [Concomitant]
     Active Substance: INSULIN LISPRO
  8. MINIPRESS [Concomitant]
     Active Substance: PRAZOSIN HYDROCHLORIDE
  9. IRON [Concomitant]
     Active Substance: IRON
  10. NUVIGIL [Concomitant]
     Active Substance: ARMODAFINIL
  11. GABAPENTIN. [Concomitant]
     Active Substance: GABAPENTIN
  12. INSULIN [Concomitant]
     Active Substance: INSULIN NOS
  13. TIZANIDINE [Concomitant]
     Active Substance: TIZANIDINE
  14. ATENOLOL. [Concomitant]
     Active Substance: ATENOLOL
  15. DICYCLOMINE [Concomitant]
     Active Substance: DICYCLOMINE HYDROCHLORIDE
  16. METFORMIN HCL [Concomitant]
     Active Substance: METFORMIN HYDROCHLORIDE
  17. BYETTA [Suspect]
     Active Substance: EXENATIDE
     Indication: DIABETES MELLITUS
     Dates: start: 2011, end: 201211
  18. BENTYL [Concomitant]
     Active Substance: DICYCLOMINE HYDROCHLORIDE
  19. DIVALPROEX [Concomitant]
     Active Substance: DIVALPROEX SODIUM
  20. MAGNESIUM OXIDE. [Concomitant]
     Active Substance: MAGNESIUM OXIDE
  21. TAMSULOSIN [Concomitant]
     Active Substance: TAMSULOSIN
  22. WARFARIN [Concomitant]
     Active Substance: WARFARIN
  23. COLCHICINE. [Concomitant]
     Active Substance: COLCHICINE
  24. LANTUS [Concomitant]
     Active Substance: INSULIN GLARGINE
  25. SYNTHROID [Concomitant]
     Active Substance: LEVOTHYROXINE SODIUM
  26. PROTONIX [Concomitant]
     Active Substance: PANTOPRAZOLE SODIUM
  27. FUROSEMIDE. [Concomitant]
     Active Substance: FUROSEMIDE
  28. OMEPRAZOLE. [Concomitant]
     Active Substance: OMEPRAZOLE
  29. REMERON [Concomitant]
     Active Substance: MIRTAZAPINE
  30. LACTULOSE. [Concomitant]
     Active Substance: LACTULOSE
  31. METHADONE [Concomitant]
     Active Substance: METHADONE HYDROCHLORIDE
  32. CHOLECALCIFEROL [Concomitant]
     Active Substance: CHOLECALCIFEROL
  33. VITAMIN D3 [Concomitant]
     Active Substance: CHOLECALCIFEROL
  34. DEPAKOTE [Concomitant]
     Active Substance: DIVALPROEX SODIUM
  35. MULTIVITAMIN [Concomitant]
     Active Substance: VITAMINS
  36. LASIX [Concomitant]
     Active Substance: FUROSEMIDE
  37. POTASSIUM CHLORIDE. [Concomitant]
     Active Substance: POTASSIUM CHLORIDE
  38. TOPIRAMATE. [Concomitant]
     Active Substance: TOPIRAMATE
  39. FLORINEF ACETATE [Concomitant]
     Active Substance: FLUDROCORTISONE ACETATE
  40. COUMADIN [Concomitant]
     Active Substance: WARFARIN SODIUM
  41. LISINOPRIL. [Concomitant]
     Active Substance: LISINOPRIL
  42. OXYCODONE [Concomitant]
     Active Substance: OXYCODONE
  43. PRAZOSIN [Concomitant]
     Active Substance: PRAZOSIN
  44. ARMODAFINIL. [Concomitant]
     Active Substance: ARMODAFINIL
  45. MAGNESIUM OXIDE. [Concomitant]
     Active Substance: MAGNESIUM OXIDE
  46. OMEPRAZOLE. [Concomitant]
     Active Substance: OMEPRAZOLE
  47. TESTOSTERONE. [Concomitant]
     Active Substance: TESTOSTERONE
  48. TOPAMAX [Concomitant]
     Active Substance: TOPIRAMATE
  49. ADVAIR HFA [Concomitant]
     Active Substance: FLUTICASONE PROPIONATE\SALMETEROL XINAFOATE
  50. HYDROCORTISONE. [Concomitant]
     Active Substance: HYDROCORTISONE
  51. SUMATRIPTAN [Concomitant]
     Active Substance: SUMATRIPTAN
  52. VENLAFAXINE HCL [Concomitant]
     Active Substance: VENLAFAXINE HYDROCHLORIDE
  53. ABILIFY [Concomitant]
     Active Substance: ARIPIPRAZOLE
  54. DILAUDID [Concomitant]
     Active Substance: HYDROMORPHONE HYDROCHLORIDE
  55. EFFEXOR [Concomitant]
     Active Substance: VENLAFAXINE HYDROCHLORIDE
  56. NEURONTIN [Concomitant]
     Active Substance: GABAPENTIN
  57. VALIUM [Concomitant]
     Active Substance: DIAZEPAM

REACTIONS (1)
  - Pancreatic carcinoma [Fatal]

NARRATIVE: CASE EVENT DATE: 201210
